FAERS Safety Report 8849579 (Version 1)
Quarter: 2012Q4

REPORT INFORMATION
  Report Type: Spontaneous
  Country: US (occurrence: None)
  Receive Date: 20121018
  Receipt Date: 20121018
  Transmission Date: 20130627
  Serious: Yes (Other)
  Sender: FDA-Public Use
  Company Number: None

PATIENT
  Age: 56 Year
  Sex: Female

DRUGS (1)
  1. COPAXONE TEVA [Suspect]
     Indication: MULTIPLE SCLEROSIS
     Route: 058
     Dates: start: 20100101, end: 20121017

REACTIONS (6)
  - Skin irritation [None]
  - Rash erythematous [None]
  - Rash pruritic [None]
  - Urticaria [None]
  - Product quality issue [None]
  - Drug effect decreased [None]
